FAERS Safety Report 14559153 (Version 1)
Quarter: 2018Q1

REPORT INFORMATION
  Report Type: Spontaneous
  Country: US (occurrence: US)
  Receive Date: 20180221
  Receipt Date: 20180221
  Transmission Date: 20180509
  Serious: No
  Sender: FDA-Public Use
  Company Number: US-FRESENIUS KABI-FK201801912

PATIENT
  Age: 60 Year
  Sex: Male
  Weight: 86 kg

DRUGS (1)
  1. MORPHINE SULFATE INJECTION, USP [Suspect]
     Active Substance: MORPHINE SULFATE
     Indication: PROCEDURAL PAIN
     Route: 042
     Dates: start: 20180210, end: 20180216

REACTIONS (3)
  - Wrong technique in device usage process [Unknown]
  - Haemorrhage [Unknown]
  - Underdose [Unknown]

NARRATIVE: CASE EVENT DATE: 20180211
